FAERS Safety Report 6169754-0 (Version None)
Quarter: 2009Q2

REPORT INFORMATION
  Report Type: 
  Country: None (occurrence: None)
  Receive Date: 20090428
  Receipt Date: 20090416
  Transmission Date: 20091009
  Serious: Yes (Hospitalization)
  Sender: FDA-Public Use
  Company Number: KR-ROCHE-627655

PATIENT
  Age: 29 Year
  Sex: Female

DRUGS (2)
  1. ROACCUTANE [Suspect]
     Indication: ACNE
     Dosage: FROM AUTUMN OF 2001 TO SPRING OF 2002.
     Route: 048
     Dates: start: 20010101, end: 20020101
  2. ROACCUTANE [Suspect]
     Dosage: FROM AUTUMN OF 2002 TO END OF 2002.
     Route: 048
     Dates: start: 20020101, end: 20020101

REACTIONS (1)
  - CHOLECYSTITIS CHRONIC [None]
